FAERS Safety Report 9813477 (Version 2)
Quarter: 2014Q1

REPORT INFORMATION
  Report Type: Spontaneous
  Country: US (occurrence: US)
  Receive Date: 20140113
  Receipt Date: 20140221
  Transmission Date: 20141002
  Serious: Yes (Other)
  Sender: FDA-Public Use
  Company Number: US-ABBVIE-13P-163-1165482-00

PATIENT
  Age: 32 Year
  Sex: Male
  Weight: 79.45 kg

DRUGS (1)
  1. HUMIRA [Suspect]
     Indication: PSORIASIS
     Dates: start: 20120615, end: 20130702

REACTIONS (5)
  - Penile squamous cell carcinoma [Recovered/Resolved]
  - Impetigo [Unknown]
  - Staphylococcal skin infection [Not Recovered/Not Resolved]
  - Staphylococcal skin infection [Unknown]
  - Papilloma viral infection [Not Recovered/Not Resolved]
